FAERS Safety Report 18527829 (Version 1)
Quarter: 2020Q4

REPORT INFORMATION
  Report Type: Spontaneous
  Country: US (occurrence: US)
  Receive Date: 20201120
  Receipt Date: 20201120
  Transmission Date: 20210114
  Serious: No
  Sender: FDA-Public Use
  Company Number: US-MYLANLABS-2020M1093281

PATIENT
  Age: 57 Year
  Sex: Female
  Weight: 61 kg

DRUGS (3)
  1. TRIAMTERENE AND HYDROCHLOROTHIAZIDE TABLETS [Suspect]
     Active Substance: HYDROCHLOROTHIAZIDE\TRIAMTERENE
     Indication: HYPERTENSION
     Dosage: 0.5 MILLIGRAM, QD, 1/2 A TABLET ONCE A DAY
     Route: 048
     Dates: start: 20201031, end: 20201104
  2. DIAZEPAM. [Concomitant]
     Active Substance: DIAZEPAM
     Indication: MUSCLE SPASTICITY
     Dosage: UNK
  3. LOSARTAN. [Concomitant]
     Active Substance: LOSARTAN
     Indication: MUSCLE SPASTICITY
     Dosage: UNK, QD

REACTIONS (5)
  - Pelvic pain [Recovering/Resolving]
  - Intentional product misuse [Not Recovered/Not Resolved]
  - Micturition urgency [Recovering/Resolving]
  - Flushing [Recovering/Resolving]
  - Abdominal pain [Recovering/Resolving]

NARRATIVE: CASE EVENT DATE: 20201031
